FAERS Safety Report 6110115-8 (Version None)
Quarter: 2009Q1

REPORT INFORMATION
  Report Type: 
  Country: None (occurrence: None)
  Receive Date: 20090310
  Receipt Date: 20090227
  Transmission Date: 20090719
  Serious: Yes (Hospitalization)
  Sender: FDA-Public Use
  Company Number: IN-AMGEN-UK336604

PATIENT

DRUGS (6)
  1. NEULASTIM [Suspect]
     Indication: NEUTROPENIA
     Route: 065
  2. RITUXIMAB [Concomitant]
     Route: 065
  3. CYCLOPHOSPHAMIDE [Concomitant]
     Route: 065
  4. DOXORUBICIN HYDROCHLORIDE [Concomitant]
     Route: 065
  5. VINCRISTINE [Concomitant]
     Route: 065
  6. PREDNISOLONE [Concomitant]
     Route: 065

REACTIONS (1)
  - NEUTROPHIL COUNT DECREASED [None]
